FAERS Safety Report 8290942 (Version 2)
Quarter: 2013Q2

REPORT INFORMATION
  Report Type: Spontaneous
  Country: US (occurrence: None)
  Receive Date: 20111122
  Receipt Date: 20120426
  Transmission Date: 20140414
  Serious: No
  Sender: FDA-Public Use
  Company Number: PHEH2011US02160

PATIENT
  Age: 54 Year
  Sex: Male

DRUGS (14)
  1. GILENYA [Suspect]
     Route: 048
     Dates: start: 20110923
  2. MORPHINE [Suspect]
  3. ZANTAC [Concomitant]
  4. ARICEPT [Concomitant]
  5. FAMPRIDINE (FAMPRIDINE) [Concomitant]
  6. PROSCAR [Concomitant]
  7. ZYPREXA [Concomitant]
  8. LISINOPRIL [Concomitant]
  9. CELEXA [Concomitant]
  10. SIMVASTATIN [Concomitant]
  11. METOPROLOL TARTRATE [Concomitant]
  12. ATIVAN [Concomitant]
  13. KLONOPIN [Concomitant]
  14. HYDROXYZINE PAMOATE (NGX) (HYDROXYZINE) [Suspect]

REACTIONS (4)
  - GASTROINTESTINAL PAIN [None]
  - PRODUCTIVE COUGH [None]
  - GASTROINTESTINAL MOTILITY DISORDER [None]
  - Chest pain [None]
